FAERS Safety Report 8531339-6 (Version None)
Quarter: 2012Q3

REPORT INFORMATION
  Report Type: 
  Country: None (occurrence: None)
  Receive Date: 20120710
  Receipt Date: 20120625
  Transmission Date: 20120928
  Serious: Yes (Hospitalization)
  Sender: FDA-Public Use
  Company Number: KAD201203-000188

PATIENT
  Age: 57 Year
  Sex: Female

DRUGS (7)
  1. RIBAVIRIN [Suspect]
     Indication: HEPATITIS C
     Dosage: 1200 MG (600 MG, TWICE A DAY), TABLETS, ORAL
     Route: 048
     Dates: start: 20110705
  2. PEGINTERFERON ALFA-2A [Suspect]
     Indication: HEPATITIS C
     Dosage: 180 MCG, ONCE WEEKLY, SUBCUTANEOUS
     Route: 058
     Dates: start: 20110705
  3. ESCITALOPRAM OXALATE [Concomitant]
  4. PHENERGAN (PROMETHAZINE HYDROCHLORIDE, DIBROPROPAMIDINE, ISETIONATE) [Concomitant]
  5. FLUTICASONE PROPIONATE [Concomitant]
  6. KLIOGEST (ESTRADIOL, NORETHISTERONE ACETATE) [Concomitant]
  7. ABT-267 (ABT-267) [Suspect]
     Indication: HEPATITIS C
     Dosage: TABLETS, ONCE DAILY (84 DAYS)
     Dates: start: 20110705, end: 20110927

REACTIONS (4)
  - ARTHRALGIA [None]
  - MALNUTRITION [None]
  - DEHYDRATION [None]
  - MUSCULAR WEAKNESS [None]
